FAERS Safety Report 7944058-1 (Version None)
Quarter: 2011Q4

REPORT INFORMATION
  Report Type: 
  Country: None (occurrence: None)
  Receive Date: 20111128
  Receipt Date: 20111115
  Transmission Date: 20120403
  Serious: Yes (Hospitalization, Disabling, Other)
  Sender: FDA-Public Use
  Company Number: US-ASTRAZENECA-2010SE33982

PATIENT
  Age: 68 Year
  Sex: Female

DRUGS (3)
  1. NEXIUM [Suspect]
     Indication: GASTRITIS
     Route: 048
  2. CRESTOR [Suspect]
     Route: 048
  3. GENERIC ZOCOR [Concomitant]

REACTIONS (4)
  - DYSPEPSIA [None]
  - AMNESIA [None]
  - INFLUENZA [None]
  - CEREBROVASCULAR ACCIDENT [None]
